FAERS Safety Report 21885320 (Version 4)
Quarter: 2023Q2

REPORT INFORMATION
  Report Type: Spontaneous
  Country: US (occurrence: US)
  Receive Date: 20230119
  Receipt Date: 20230421
  Transmission Date: 20230721
  Serious: Yes (Other)
  Sender: FDA-Public Use
  Company Number: US-SA-SAC20230116000848

PATIENT
  Age: 55 Year
  Sex: Female

DRUGS (1)
  1. DUPIXENT [Suspect]
     Active Substance: DUPILUMAB
     Indication: Asthma
     Dosage: 300 MG, OTHER
     Route: 058

REACTIONS (11)
  - Cataract [Unknown]
  - Cough [Not Recovered/Not Resolved]
  - Dyspnoea [Not Recovered/Not Resolved]
  - Lacrimation increased [Unknown]
  - Abdominal pain upper [Unknown]
  - Lip blister [Unknown]
  - Lung disorder [Unknown]
  - Condition aggravated [Unknown]
  - Sinusitis [Unknown]
  - Dry eye [Unknown]
  - Eye irritation [Unknown]
